FAERS Safety Report 9131647 (Version 1)
Quarter: 2013Q1

REPORT INFORMATION
  Report Type: Spontaneous
  Country: AU (occurrence: AU)
  Receive Date: 20130301
  Receipt Date: 20130301
  Transmission Date: 20140127
  Serious: Yes (Hospitalization, Other)
  Sender: FDA-Public Use
  Company Number: AU-BAYER-2013-023839

PATIENT
  Age: 39 Year
  Sex: Female

DRUGS (2)
  1. NIFEDIPINE [Suspect]
     Indication: PREMATURE LABOUR
     Route: 048
  2. ACETYLSALICYLIC ACID({=100 MG) [Suspect]
     Indication: PROPHYLAXIS

REACTIONS (10)
  - Fungal sepsis [Recovered/Resolved]
  - Amniotic cavity infection [Recovered/Resolved]
  - Pyrexia [Recovered/Resolved]
  - Premature labour [Recovered/Resolved]
  - Vaginal haemorrhage [Recovered/Resolved]
  - Chills [Recovered/Resolved]
  - Hypotension [Recovered/Resolved]
  - Stillbirth [None]
  - Exposure during pregnancy [None]
  - Off label use [None]
